FAERS Safety Report 10666196 (Version 4)
Quarter: 2015Q2

REPORT INFORMATION
  Report Type: Report from Study
  Country: US (occurrence: US)
  Receive Date: 20141219
  Receipt Date: 20150427
  Transmission Date: 20150821
  Serious: Yes (Other)
  Sender: FDA-Public Use
  Company Number: US-CELGENE-USA-2014121280

PATIENT
  Age: 61 Year
  Sex: Female
  Weight: 81.5 kg

DRUGS (32)
  1. CC-4047 [Suspect]
     Active Substance: POMALIDOMIDE
     Indication: PLASMA CELL MYELOMA
     Route: 048
     Dates: start: 20140218, end: 20140324
  2. CEFUROXIME. [Concomitant]
     Active Substance: CEFUROXIME
     Indication: PNEUMONIA
     Dosage: 2 GRAM
     Route: 048
     Dates: start: 20140408, end: 20140418
  3. DEXAMETHASONE. [Suspect]
     Active Substance: DEXAMETHASONE
     Dosage: 800 MILLIGRAM
     Route: 041
     Dates: start: 20141125
  4. ACYCLOVIR. [Concomitant]
     Active Substance: ACYCLOVIR
     Indication: PROPHYLAXIS
     Dosage: 20 MICROGRAM
     Route: 048
     Dates: start: 20130723
  5. OMEPRAZOLE. [Concomitant]
     Active Substance: OMEPRAZOLE
     Indication: GASTROOESOPHAGEAL REFLUX DISEASE
     Dosage: 325 MILLIGRAM
     Route: 048
     Dates: start: 20130903
  6. MIDAZOLAM [Concomitant]
     Active Substance: MIDAZOLAM\MIDAZOLAM HYDROCHLORIDE
     Indication: PROPHYLAXIS
     Route: 041
     Dates: start: 20140623, end: 20140623
  7. ALLOPURINOL. [Concomitant]
     Active Substance: ALLOPURINOL
     Indication: HYPERURICAEMIA
     Dosage: 1000 MILLIGRAM
     Route: 048
     Dates: start: 20140218, end: 20140408
  8. FUROSEMIDE. [Concomitant]
     Active Substance: FUROSEMIDE
     Indication: OEDEMA PERIPHERAL
     Route: 048
     Dates: start: 20140530
  9. BORTEZOMIB [Suspect]
     Active Substance: BORTEZOMIB
     Route: 041
     Dates: start: 20141125
  10. DEXAMETHASONE. [Suspect]
     Active Substance: DEXAMETHASONE
     Indication: PLASMA CELL MYELOMA
     Route: 048
     Dates: start: 20140218
  11. ZOLEDRONIC ACID [Concomitant]
     Active Substance: ZOLEDRONIC ACID
     Indication: PROPHYLAXIS
     Dosage: 300 MILLIGRAM
     Route: 041
     Dates: start: 20130723
  12. ASPIRIN. [Concomitant]
     Active Substance: ASPIRIN
     Indication: THROMBOSIS PROPHYLAXIS
     Route: 048
     Dates: start: 20130723
  13. MAG HYDROX/AL/HYDROX/SIMETH [Concomitant]
     Indication: PARAESTHESIA ORAL
     Route: 065
     Dates: start: 20140318
  14. CEFTAZIDIME. [Concomitant]
     Active Substance: CEFTAZIDIME
     Indication: PNEUMONIA
     Route: 048
     Dates: start: 20140321, end: 20140328
  15. DEXAMETHASONE. [Suspect]
     Active Substance: DEXAMETHASONE
     Route: 048
     Dates: start: 20141125
  16. ZITHROMAX [Concomitant]
     Active Substance: AZITHROMYCIN DIHYDRATE
     Route: 048
     Dates: start: 20141020, end: 20141027
  17. HYDROCODONE BITARTRATE AND ACETAMINOPHEN [Concomitant]
     Active Substance: ACETAMINOPHEN\HYDROCODONE BITARTRATE
     Indication: MUSCULOSKELETAL CHEST PAIN
     Dosage: 5/325MG
     Route: 048
     Dates: start: 20130723
  18. AUGMENTIN [Concomitant]
     Active Substance: AMOXICILLIN\CLAVULANATE POTASSIUM
     Dosage: 875/124 MG
     Route: 048
     Dates: start: 20140408, end: 20140418
  19. FENTANYL. [Concomitant]
     Active Substance: FENTANYL
     Indication: PAIN
     Dosage: 20 MILLILITER
     Route: 041
     Dates: start: 20140623, end: 20140623
  20. INFLUENZA VIRUS VACCINE [Concomitant]
     Active Substance: INFLUENZA VIRUS VACCINE
     Indication: INFECTION PROPHYLAXIS
     Route: 030
     Dates: start: 20141104, end: 20141104
  21. CC-4047 [Suspect]
     Active Substance: POMALIDOMIDE
     Route: 048
     Dates: start: 20141125
  22. LEVOTHYROXINE [Concomitant]
     Active Substance: LEVOTHYROXINE
     Indication: HYPOTHYROIDISM
     Dosage: .1333 MILLIGRAM
     Route: 048
     Dates: start: 20130625
  23. AUGMENTIN [Concomitant]
     Active Substance: AMOXICILLIN\CLAVULANATE POTASSIUM
     Indication: PNEUMONIA
     Dosage: 875/124 MG
     Route: 048
     Dates: start: 20140306, end: 20140311
  24. NYSTATIN. [Concomitant]
     Active Substance: NYSTATIN
     Indication: ORAL CANDIDIASIS
     Route: 048
     Dates: start: 20141014
  25. BORTEZOMIB [Suspect]
     Active Substance: BORTEZOMIB
     Indication: PLASMA CELL MYELOMA
     Route: 041
     Dates: start: 20140218
  26. ONDANSETRON [Concomitant]
     Active Substance: ONDANSETRON
     Indication: PROPHYLAXIS
     Dosage: 100 MILLIGRAM
     Route: 048
     Dates: start: 20130806
  27. PROMETHAZINE [Concomitant]
     Active Substance: PROMETHAZINE\PROMETHAZINE HYDROCHLORIDE
     Indication: PROPHYLAXIS
     Dosage: 90 MILLILITER
     Route: 048
     Dates: start: 20140218
  28. AUGMENTIN [Concomitant]
     Active Substance: AMOXICILLIN\CLAVULANATE POTASSIUM
     Indication: UPPER RESPIRATORY TRACT INFECTION
     Dosage: 875/124 MG
     Route: 048
     Dates: start: 20140214, end: 20140219
  29. AUGMENTIN [Concomitant]
     Active Substance: AMOXICILLIN\CLAVULANATE POTASSIUM
     Dosage: 875/124 MG
     Route: 048
     Dates: start: 20140915, end: 20140922
  30. AUGMENTIN [Concomitant]
     Active Substance: AMOXICILLIN\CLAVULANATE POTASSIUM
     Dosage: 875/124 MG
     Route: 048
     Dates: start: 20141111
  31. ZITHROMAX [Concomitant]
     Active Substance: AZITHROMYCIN DIHYDRATE
     Indication: NASAL CONGESTION
     Route: 048
     Dates: start: 20140321, end: 20140328
  32. IPRATROPIUM-ALBUTEROL [Concomitant]
     Indication: LUNG INFILTRATION
     Dosage: 20-100 MG
     Route: 055
     Dates: start: 20140408

REACTIONS (1)
  - Bowen^s disease [Not Recovered/Not Resolved]

NARRATIVE: CASE EVENT DATE: 20141125
